FAERS Safety Report 4458523-5 (Version None)
Quarter: 2004Q3

REPORT INFORMATION
  Report Type: 
  Country: None (occurrence: None)
  Receive Date: 20040922
  Receipt Date: 20030917
  Transmission Date: 20050211
  Serious: Yes (Hospitalization)
  Sender: FDA-Public Use
  Company Number: US-SHR-03-009956

PATIENT
  Age: 56 Year
  Sex: Female

DRUGS (12)
  1. BETASERON [Suspect]
     Indication: MULTIPLE SCLEROSIS
     Dosage: 8 MIU, EVERY 2D, SUBCUTANEOUS
     Route: 058
     Dates: start: 19961001
  2. VIACTIV [Concomitant]
  3. NICORETTE GUM (NICOTINE RESIN) [Concomitant]
  4. ZANTAC [Concomitant]
  5. CARAFATE [Concomitant]
  6. ZESTRIL [Concomitant]
  7. PRIMIDONE (MYSOLINE) (PRIMIDONE) [Concomitant]
  8. HYDROXYZINE HYDROCHLORIDE (EVISTA) (HYDROXYZINE HYDROCHLORIDE) [Concomitant]
  9. TEGRETOL [Concomitant]
  10. KEPPRA [Concomitant]
  11. NEURONTIN [Concomitant]
  12. ACETASOL (ACETIC ACID, BENZETHONIUM CHLORIDE, PROPYLENE GLYCOL DIACETA [Concomitant]

REACTIONS (5)
  - CONVULSION [None]
  - DRUG LEVEL ABOVE THERAPEUTIC [None]
  - FALL [None]
  - HAEMATOMA [None]
  - MULTIPLE SCLEROSIS [None]
